FAERS Safety Report 5781978-0 (Version None)
Quarter: 2008Q2

REPORT INFORMATION
  Report Type: 
  Country: None (occurrence: None)
  Receive Date: 20080623
  Receipt Date: 20071221
  Transmission Date: 20081010
  Serious: No
  Sender: FDA-Public Use
  Company Number: US-ASTRAZENECA-2007UW28910

PATIENT
  Age: 82 Year
  Sex: Female
  Weight: 74.8 kg

DRUGS (13)
  1. RHINOCORT [Suspect]
     Indication: SINUS OPERATION
     Route: 045
  2. LISINOPRIL [Concomitant]
  3. LIPITOR [Concomitant]
  4. OMEPRAZOLE [Concomitant]
  5. KLOR-CON [Concomitant]
  6. FURSEMIDE [Concomitant]
  7. ZYRTEC [Concomitant]
  8. VITAMIN CAP [Concomitant]
  9. ASCORBIC ACID [Concomitant]
  10. VITAMIN B-12 [Concomitant]
  11. GLUCOSAMINE [Concomitant]
  12. CHONDROITIN [Concomitant]
  13. SUPHEDRINE PE [Concomitant]

REACTIONS (2)
  - ACCIDENTAL EXPOSURE [None]
  - EYE IRRITATION [None]
